FAERS Safety Report 25147901 (Version 1)
Quarter: 2025Q2

REPORT INFORMATION
  Report Type: Spontaneous
  Country: SG (occurrence: SG)
  Receive Date: 20250402
  Receipt Date: 20250402
  Transmission Date: 20250716
  Serious: Yes (Hospitalization, Other)
  Sender: LEADING PHARMA
  Company Number: SG-LEADINGPHARMA-SG-2025LEALIT00063

PATIENT
  Age: 87 Year
  Sex: Male

DRUGS (2)
  1. LIDOCAINE [Suspect]
     Active Substance: LIDOCAINE
     Indication: Local anaesthesia
     Route: 058
  2. MIDAZOLAM [Concomitant]
     Active Substance: MIDAZOLAM
     Indication: Sedation
     Route: 042

REACTIONS (2)
  - Quadriplegia [Recovered/Resolved]
  - Accidental high spinal anaesthesia [Recovered/Resolved]
